FAERS Safety Report 6975349-9 (Version None)
Quarter: 2010Q3

REPORT INFORMATION
  Report Type: 
  Country: None (occurrence: None)
  Receive Date: 20100910
  Receipt Date: 20090309
  Transmission Date: 20110219
  Serious: No
  Sender: FDA-Public Use
  Company Number: US-WYE-H08526709

PATIENT
  Sex: Female
  Weight: 77.18 kg

DRUGS (6)
  1. PRISTIQ [Suspect]
     Indication: DEPRESSION
     Route: 048
     Dates: start: 20080901, end: 20090302
  2. PRISTIQ [Suspect]
     Indication: PANIC ATTACK
  3. FEXOFENADINE HYDROCHLORIDE/PSEUDOEPHEDRINE HYDROCHLORIDE [Concomitant]
  4. VITAMIN B-12 [Concomitant]
  5. SIMVASTATIN [Concomitant]
  6. FISH OIL, HYDROGENATED [Concomitant]

REACTIONS (4)
  - DIZZINESS [None]
  - DRUG WITHDRAWAL SYNDROME [None]
  - LABORATORY TEST INTERFERENCE [None]
  - WEIGHT INCREASED [None]
